FAERS Safety Report 19377518 (Version 1)
Quarter: 2021Q2

REPORT INFORMATION
  Report Type: Report from Study
  Country: US (occurrence: US)
  Receive Date: 20210604
  Receipt Date: 20210604
  Transmission Date: 20210717
  Serious: Yes (Other)
  Sender: FDA-Public Use
  Company Number: US-PFIZER INC-2021615713

PATIENT
  Age: 80 Year
  Sex: Female
  Weight: 65.49 kg

DRUGS (17)
  1. MAGNESIUM AMINO ACID CHELATE [Concomitant]
     Active Substance: MAGNESIUM
     Route: 048
  2. ZYRTEC [Concomitant]
     Active Substance: CETIRIZINE HYDROCHLORIDE
     Route: 048
  3. BINIMETINIB [Suspect]
     Active Substance: BINIMETINIB
     Dosage: 15 MG, 2X/DAY
     Dates: start: 20190521, end: 20210526
  4. METHYL B12 [Concomitant]
     Active Substance: METHYLCOBALAMIN
     Route: 048
  5. VITAMIN D3 [Concomitant]
     Active Substance: CHOLECALCIFEROL
     Indication: PROPHYLAXIS
     Dosage: UNK
     Route: 048
     Dates: start: 19660503
  6. IMATINIB. [Suspect]
     Active Substance: IMATINIB MESYLATE
     Dosage: 400 MG, 1X/DAY
     Dates: start: 20190507
  7. SIMETHICONE (DIMETHICONE) [Concomitant]
     Active Substance: DIMETHICONE
     Indication: FLATULENCE
     Dosage: UNK
     Route: 048
     Dates: start: 20190913
  8. POTASSIUM [Concomitant]
     Active Substance: POTASSIUM
     Route: 048
  9. OMEGA 3 [FISH OIL] [Concomitant]
     Active Substance: FISH OIL
     Route: 048
  10. ESTRING [Concomitant]
     Active Substance: ESTRADIOL
     Indication: PROPHYLAXIS
     Dosage: UNK
     Dates: start: 20181101
  11. FIBERCON [Concomitant]
     Active Substance: CALCIUM POLYCARBOPHIL
     Dosage: UNK
     Route: 048
  12. RESTASIS [Concomitant]
     Active Substance: CYCLOSPORINE
     Indication: EYE DISORDER
     Dosage: OPHTHALMIC EMULSION
     Route: 048
     Dates: start: 20210408
  13. MUPIROCIN. [Concomitant]
     Active Substance: MUPIROCIN
     Indication: LOCALISED INFECTION
     Dosage: UNK
     Route: 061
     Dates: start: 20200327
  14. ASCORBIC ACID. [Concomitant]
     Active Substance: ASCORBIC ACID
     Dosage: UNK
     Route: 048
     Dates: start: 20200107
  15. BIFIDOBACTERIUM ADOLESCENTIS/LACTOBACILLUS ACIDOPHILUS/LACTOBACILLUS PLANTARUM [Concomitant]
     Dosage: UNK
     Route: 048
  16. ZINC. [Concomitant]
     Active Substance: ZINC
     Route: 048
  17. VITAMIN B12 [Concomitant]
     Active Substance: CYANOCOBALAMIN
     Route: 048

REACTIONS (1)
  - Retinal vascular disorder [Not Recovered/Not Resolved]

NARRATIVE: CASE EVENT DATE: 20210526
